FAERS Safety Report 15008988 (Version 1)
Quarter: 2018Q2

REPORT INFORMATION
  Report Type: Spontaneous
  Country: US (occurrence: US)
  Receive Date: 20180614
  Receipt Date: 20180614
  Transmission Date: 20180711
  Serious: Yes (Hospitalization)
  Sender: FDA-Public Use
  Company Number: US-ROCHE-2138228

PATIENT
  Sex: Male

DRUGS (18)
  1. LIDOCAINE. [Concomitant]
     Active Substance: LIDOCAINE
  2. AMLODIPINE [Concomitant]
     Active Substance: AMLODIPINE BESYLATE
  3. SORBITOL. [Concomitant]
     Active Substance: SORBITOL
  4. NOVOLIN [Concomitant]
     Active Substance: INSULIN HUMAN
  5. TAMSULOSIN [Concomitant]
     Active Substance: TAMSULOSIN
  6. FINASTERIDE. [Concomitant]
     Active Substance: FINASTERIDE
  7. JANUVIA [Concomitant]
     Active Substance: SITAGLIPTIN PHOSPHATE
  8. ELIQUIS [Concomitant]
     Active Substance: APIXABAN
  9. FUROSEMIDE. [Concomitant]
     Active Substance: FUROSEMIDE
  10. ERIVEDGE [Suspect]
     Active Substance: VISMODEGIB
     Indication: BASAL CELL CARCINOMA
     Dosage: DAILY; ONGOING: YES
     Route: 048
     Dates: start: 20180120
  11. VITAMIN C [Concomitant]
     Active Substance: ASCORBIC ACID
  12. PANTOPRAZOLE SODIUM. [Concomitant]
     Active Substance: PANTOPRAZOLE SODIUM
  13. MELATONIN [Concomitant]
     Active Substance: MELATONIN
  14. PREVALITE [Concomitant]
     Active Substance: CHOLESTYRAMINE
  15. METFORMIN [Concomitant]
     Active Substance: METFORMIN HYDROCHLORIDE
  16. METOPROLOL TARTRATE. [Concomitant]
     Active Substance: METOPROLOL TARTRATE
  17. DOCUSATE [Concomitant]
     Active Substance: DOCUSATE
  18. ZOLOFT [Concomitant]
     Active Substance: SERTRALINE HYDROCHLORIDE

REACTIONS (1)
  - Renal disorder [Unknown]
